FAERS Safety Report 21886656 (Version 4)
Quarter: 2023Q2

REPORT INFORMATION
  Report Type: Spontaneous
  Country: US (occurrence: US)
  Receive Date: 20230119
  Receipt Date: 20230515
  Transmission Date: 20230721
  Serious: No
  Sender: FDA-Public Use
  Company Number: US-BRISTOL-MYERS SQUIBB COMPANY-2023-008772

PATIENT
  Age: 84 Year
  Sex: Male

DRUGS (1)
  1. POMALYST [Suspect]
     Active Substance: POMALIDOMIDE
     Indication: Plasma cell myeloma
     Dosage: FREQUENCY: EVERY DAY FOR 21 DAYS FOLLOWED BY 7 DAYS OFF FOR A CYCLE LENGTH OF 28 DAYS.
     Route: 048
     Dates: start: 20230104

REACTIONS (2)
  - Muscle tightness [Unknown]
  - Platelet count decreased [Unknown]
